FAERS Safety Report 15877051 (Version 1)
Quarter: 2019Q1

REPORT INFORMATION
  Report Type: Spontaneous
  Country: FR (occurrence: FR)
  Receive Date: 20190128
  Receipt Date: 20190128
  Transmission Date: 20190417
  Serious: Yes (Hospitalization)
  Sender: FDA-Public Use
  Company Number: FR-SAKK-2019SA016744AA

PATIENT
  Age: 72 Year
  Sex: Female
  Weight: 56 kg

DRUGS (12)
  1. ZALTRAP [Suspect]
     Active Substance: ZIV-AFLIBERCEPT
     Indication: COLORECTAL CANCER
     Dosage: 225 MG PER CURE
     Route: 042
     Dates: start: 20180717, end: 20180717
  2. FLUOROURACIL. [Suspect]
     Active Substance: FLUOROURACIL
     Dosage: 625 MG, QCY
     Route: 040
     Dates: start: 20180717, end: 20180717
  3. FLUOROURACIL. [Suspect]
     Active Substance: FLUOROURACIL
     Indication: COLORECTAL CANCER
     Dosage: 3700 MG ON  48H
     Route: 041
     Dates: start: 20180717, end: 20180717
  4. IRINOTECAN [Suspect]
     Active Substance: IRINOTECAN
     Indication: COLORECTAL CANCER
     Dosage: 280 MG, QCY
     Route: 042
     Dates: start: 20180717, end: 20180717
  5. ATROPINE SULFATE. [Suspect]
     Active Substance: ATROPINE SULFATE
     Dosage: 0.25 MG, QCY
     Route: 058
     Dates: start: 20181204, end: 20181204
  6. FLUOROURACIL. [Suspect]
     Active Substance: FLUOROURACIL
     Dosage: 3700 MG ON  48H
     Route: 041
     Dates: start: 20181204, end: 20181204
  7. CALCIUM FOLINATE [Suspect]
     Active Substance: LEUCOVORIN CALCIUM
     Indication: COLORECTAL CANCER
     Dosage: 620 MG, QCY
     Route: 042
     Dates: start: 20180717, end: 20180717
  8. CALCIUM FOLINATE [Suspect]
     Active Substance: LEUCOVORIN CALCIUM
     Dosage: 620 MG, QCY
     Route: 042
     Dates: start: 20181204, end: 20181204
  9. ZALTRAP [Suspect]
     Active Substance: ZIV-AFLIBERCEPT
     Dosage: 225 MG, QCY, PER CURE
     Route: 042
     Dates: start: 20181204, end: 20181204
  10. FLUOROURACIL. [Suspect]
     Active Substance: FLUOROURACIL
     Dosage: 625 MG, QCY
     Route: 040
     Dates: start: 20181204, end: 20181204
  11. IRINOTECAN [Suspect]
     Active Substance: IRINOTECAN
     Dosage: 280 MG, QCY
     Route: 042
     Dates: start: 20181204, end: 20181204
  12. ATROPINE SULFATE. [Suspect]
     Active Substance: ATROPINE SULFATE
     Indication: PRODUCT USED FOR UNKNOWN INDICATION
     Dosage: 0.25 MG, QCY
     Route: 058
     Dates: start: 20180717, end: 20180717

REACTIONS (1)
  - Progressive multifocal leukoencephalopathy [Not Recovered/Not Resolved]

NARRATIVE: CASE EVENT DATE: 20181206
